FAERS Safety Report 7573561-1 (Version None)
Quarter: 2011Q2

REPORT INFORMATION
  Report Type: 
  Country: None (occurrence: None)
  Receive Date: 20110627
  Receipt Date: 20110609
  Transmission Date: 20111010
  Serious: No
  Sender: FDA-Public Use
  Company Number: US-B.I. PHARMACEUTICALS,INC./RIDGEFIELD-2011-BP-15042BP

PATIENT
  Age: 55 Year
  Sex: Male

DRUGS (6)
  1. OXYCODONE HCL [Concomitant]
     Indication: RHEUMATOID ARTHRITIS
  2. ATENOLOL [Concomitant]
     Indication: HYPERTENSION
     Route: 048
  3. SPIRIVA [Suspect]
     Indication: CHRONIC OBSTRUCTIVE PULMONARY DISEASE
     Dosage: 18 MCG
     Route: 055
     Dates: start: 20050101
  4. OXYCONTIN [Concomitant]
     Indication: BACK PAIN
     Route: 048
     Dates: start: 20060101
  5. OXYCODONE HCL [Concomitant]
     Indication: BACK PAIN
     Route: 048
     Dates: start: 20060101
  6. OXYCONTIN [Concomitant]
     Indication: RHEUMATOID ARTHRITIS

REACTIONS (3)
  - URETERIC INJURY [None]
  - URETERIC OBSTRUCTION [None]
  - POLLAKIURIA [None]
